FAERS Safety Report 19720380 (Version 3)
Quarter: 2021Q4

REPORT INFORMATION
  Report Type: Spontaneous
  Country: US (occurrence: US)
  Receive Date: 20210819
  Receipt Date: 20211125
  Transmission Date: 20220303
  Serious: No
  Sender: FDA-Public Use
  Company Number: US-MMM-AILNHY7B

PATIENT
  Sex: Female

DRUGS (3)
  1. ZEJULA [Suspect]
     Active Substance: NIRAPARIB
     Indication: Ovarian cancer
     Dosage: 200 MG, QD
     Route: 048
     Dates: start: 20210722
  2. ZEJULA [Suspect]
     Active Substance: NIRAPARIB
     Dosage: 200 MG, QD
     Dates: start: 20210801, end: 20210925
  3. ZEJULA [Suspect]
     Active Substance: NIRAPARIB
     Dosage: 100 MG, QD
     Dates: start: 20211101

REACTIONS (12)
  - Nausea [Not Recovered/Not Resolved]
  - Insomnia [Not Recovered/Not Resolved]
  - Hypotension [Unknown]
  - Hypertension [Unknown]
  - Heart rate increased [Unknown]
  - Constipation [Unknown]
  - Dehydration [Unknown]
  - Arthralgia [Unknown]
  - Pruritus [Unknown]
  - Rash [Unknown]
  - Burning sensation [Unknown]
  - Pain in extremity [Unknown]
